FAERS Safety Report 18626646 (Version 1)
Quarter: 2020Q4

REPORT INFORMATION
  Report Type: Spontaneous
  Country: JP (occurrence: JP)
  Receive Date: 20201217
  Receipt Date: 20201217
  Transmission Date: 20210114
  Serious: Yes (Hospitalization, Other)
  Sender: FDA-Public Use
  Company Number: JP-AMGEN-JPNSP2020015320

PATIENT
  Sex: Male

DRUGS (4)
  1. OXAROL [Suspect]
     Active Substance: MAXACALCITOL
     Indication: PRODUCT USED FOR UNKNOWN INDICATION
     Dosage: UNK (ADJUSTED BETWEEN 2.5 AND 7.5 THRICE WEEKLY)
     Route: 065
  2. ORKEDIA [Concomitant]
     Active Substance: EVOCALCET
     Dosage: UNK
     Dates: start: 20191011, end: 20191213
  3. CALTAN [Concomitant]
     Active Substance: CALCIUM CARBONATE
     Dosage: UNK (REDUCED FROM 4 TABLETS TO 3 TABLETS)
  4. EVENITY [Suspect]
     Active Substance: ROMOSOZUMAB-AQQG
     Indication: OSTEOPOROSIS
     Dosage: 210 MILLIGRAM, QMO
     Route: 058
     Dates: start: 20191017

REACTIONS (2)
  - Hypercalcaemia [Recovered/Resolved]
  - Renal cancer [Unknown]

NARRATIVE: CASE EVENT DATE: 20191121
